FAERS Safety Report 9127752 (Version 1)
Quarter: 2013Q1

REPORT INFORMATION
  Report Type: Report from Study
  Country: CZ (occurrence: CZ)
  Receive Date: 20130122
  Receipt Date: 20130122
  Transmission Date: 20140127
  Serious: Yes (Hospitalization)
  Sender: FDA-Public Use
  Company Number: CZ-TEVA-381943USA

PATIENT
  Age: 75 Year
  Sex: Female

DRUGS (5)
  1. TREANDA [Suspect]
     Indication: NON-HODGKIN^S LYMPHOMA
     Dosage: 5.6429 MILLIGRAM DAILY; CYCLIC
     Route: 042
     Dates: start: 20110527
  2. OFATUMUMAB [Suspect]
     Indication: NON-HODGKIN^S LYMPHOMA
     Dosage: 35.7143 MILLIGRAM DAILY; CYCLIC
     Route: 042
     Dates: start: 20110526
  3. TRAMAL [Concomitant]
     Indication: BACK PAIN
     Dates: start: 20110526, end: 20110725
  4. HELICID [Concomitant]
     Indication: GASTRIC ULCER
     Dates: start: 20110526, end: 20110728
  5. MILURIT [Concomitant]
     Indication: PROPHYLAXIS
     Dates: start: 20110527, end: 20110627

REACTIONS (1)
  - Pulmonary embolism [Recovered/Resolved]
